FAERS Safety Report 23351328 (Version 1)
Quarter: 2023Q4

REPORT INFORMATION
  Report Type: Spontaneous
  Country: US (occurrence: US)
  Receive Date: 20231229
  Receipt Date: 20231229
  Transmission Date: 20240109
  Serious: No
  Sender: FDA-Public Use
  Company Number: US-ABBVIE-5563947

PATIENT
  Age: 62 Year
  Sex: Female
  Weight: 8 kg

DRUGS (2)
  1. QULIPTA [Suspect]
     Active Substance: ATOGEPANT
     Indication: Migraine
     Dosage: 1 TABLET, FORM STRENGTH : 60 MILLIGRAM
     Route: 048
     Dates: start: 20220808
  2. QULIPTA [Suspect]
     Active Substance: ATOGEPANT
     Indication: Migraine
     Dosage: 1 TABLET, FORM STRENGTH : 30 MILLIGRAM
     Route: 048
     Dates: start: 20220726, end: 20220807

REACTIONS (3)
  - Migraine [Not Recovered/Not Resolved]
  - Urticaria [Recovered/Resolved]
  - Dyspnoea [Recovered/Resolved]

NARRATIVE: CASE EVENT DATE: 20220801
